FAERS Safety Report 20136344 (Version 2)
Quarter: 2022Q1

REPORT INFORMATION
  Report Type: Spontaneous
  Country: US (occurrence: US)
  Receive Date: 20211201
  Receipt Date: 20220114
  Transmission Date: 20220423
  Serious: Yes (Hospitalization, Other)
  Sender: FDA-Public Use
  Company Number: US-PFIZER INC-202101630873

PATIENT
  Age: 48 Year
  Sex: Female
  Weight: 65.306 kg

DRUGS (24)
  1. IBRANCE [Suspect]
     Active Substance: PALBOCICLIB
     Indication: Breast cancer
     Dosage: DAILY X 21 DAYS
     Route: 048
     Dates: start: 20210805
  2. AUGMENTIN [Concomitant]
     Active Substance: AMOXICILLIN\CLAVULANATE POTASSIUM
  3. BACTRIM [Concomitant]
     Active Substance: SULFAMETHOXAZOLE\TRIMETHOPRIM
  4. BEXSERO [Concomitant]
     Active Substance: NEISSERIA MENINGITIDIS GROUP B FHBP FUSION PROTEIN ANTIGEN\NEISSERIA MENINGITIDIS GROUP B NADA PROTE
  5. CALCIUM [Concomitant]
     Active Substance: CALCIUM
  6. CHLORHEXIDINE GLUCONATE [Concomitant]
     Active Substance: CHLORHEXIDINE GLUCONATE
  7. EZETIMIBE [Concomitant]
     Active Substance: EZETIMIBE
  8. FASLODEX [Concomitant]
     Active Substance: FULVESTRANT
  9. GAVILYTE - C [Concomitant]
     Active Substance: POLYETHYLENE GLYCOL 3350\POTASSIUM CHLORIDE\SODIUM BICARBONATE\SODIUM CHLORIDE\SODIUM SULFATE
  10. ACETAMINOPHEN\HYDROCODONE [Concomitant]
     Active Substance: ACETAMINOPHEN\HYDROCODONE
  11. LARISSIA [Concomitant]
     Active Substance: ETHINYL ESTRADIOL\LEVONORGESTREL
  12. LEVONORGESTREL AND ETHINYL ESTRADIOL [Concomitant]
     Active Substance: ETHINYL ESTRADIOL\LEVONORGESTREL
  13. LOSARTAN [Concomitant]
     Active Substance: LOSARTAN
  14. MAGNESIUM [Concomitant]
     Active Substance: MAGNESIUM
  15. METOPROLOL [Concomitant]
     Active Substance: METOPROLOL
  16. PROBIOTICS NOS [Concomitant]
     Active Substance: PROBIOTICS NOS
  17. SODIUM FLUORIDE [Concomitant]
     Active Substance: SODIUM FLUORIDE
  18. SYNTHROID [Concomitant]
     Active Substance: LEVOTHYROXINE SODIUM
  19. TAMSULOSIN [Concomitant]
     Active Substance: TAMSULOSIN
  20. TYLENOL [Concomitant]
     Active Substance: ACETAMINOPHEN
  21. VITAMIN D2 [Concomitant]
     Active Substance: ERGOCALCIFEROL
  22. CALCIUM CARBONATE [Concomitant]
     Active Substance: CALCIUM CARBONATE
     Dosage: UNK
  23. METOPROLOL TARTRATE [Concomitant]
     Active Substance: METOPROLOL TARTRATE
     Dosage: UNK
  24. LOSARTAN POTASSIUM [Concomitant]
     Active Substance: LOSARTAN POTASSIUM
     Dosage: UNK

REACTIONS (4)
  - Metastases to bone [Not Recovered/Not Resolved]
  - Wound [Unknown]
  - White blood cell count decreased [Not Recovered/Not Resolved]
  - Paraesthesia [Not Recovered/Not Resolved]

NARRATIVE: CASE EVENT DATE: 20210101
